APPROVED DRUG PRODUCT: STARLIX
Active Ingredient: NATEGLINIDE
Strength: 120MG **Federal Register determination that product was not discontinued or withdrawn for safety or effectiveness reasons**
Dosage Form/Route: TABLET;ORAL
Application: N021204 | Product #002
Applicant: NOVARTIS PHARMACEUTICALS CORP
Approved: Dec 22, 2000 | RLD: Yes | RS: No | Type: DISCN